FAERS Safety Report 15935993 (Version 3)
Quarter: 2019Q2

REPORT INFORMATION
  Report Type: Spontaneous
  Country: JP (occurrence: JP)
  Receive Date: 20190208
  Receipt Date: 20190422
  Transmission Date: 20190711
  Serious: Yes (Hospitalization, Other)
  Sender: FDA-Public Use
  Company Number: JP-GLAXOSMITHKLINE-JP2019JPN019572

PATIENT
  Age: 12 Year
  Sex: Male
  Weight: 40 kg

DRUGS (5)
  1. TRANEXAMIC ACID TABLETS [Concomitant]
     Active Substance: TRANEXAMIC ACID
     Dosage: 250 MG, TID
     Dates: start: 20190121, end: 20190122
  2. CARBOCISTEINE TABLETS [Concomitant]
     Active Substance: CARBOCYSTEINE
     Dosage: 250 MG, TID
     Dates: start: 20190121, end: 20190122
  3. ASTOMIN TABLETS [Concomitant]
     Dosage: 10 MG, TID
     Dates: start: 20190121, end: 20190122
  4. CALONAL TABLET [Concomitant]
     Indication: PYREXIA
     Dosage: 300 MG, PRN
     Dates: start: 20190121, end: 20190122
  5. RELENZA [Suspect]
     Active Substance: ZANAMIVIR
     Indication: INFLUENZA
     Dosage: 10 MG, BID
     Route: 055
     Dates: start: 20190121, end: 20190122

REACTIONS (4)
  - Abnormal behaviour [Recovered/Resolved]
  - Fall [Recovering/Resolving]
  - Memory impairment [Recovering/Resolving]
  - Sleep talking [Recovering/Resolving]

NARRATIVE: CASE EVENT DATE: 20190122
